FAERS Safety Report 19647525 (Version 1)
Quarter: 2021Q3

REPORT INFORMATION
  Report Type: Spontaneous
  Country: CN (occurrence: CN)
  Receive Date: 20210802
  Receipt Date: 20210802
  Transmission Date: 20211014
  Serious: Yes (Hospitalization)
  Sender: FDA-Public Use
  Company Number: CN-BAXTER-2021BAX023421

PATIENT
  Age: 19 Year
  Sex: Male
  Weight: 60 kg

DRUGS (8)
  1. 0.9% SODIUM CHLORIDE INJECTION [Suspect]
     Active Substance: SODIUM CHLORIDE
     Indication: MEDICATION DILUTION
     Dosage: 1ST DAY OF VDCLP CHEMOTHERAPY, NORMAL SALINE + CYCLOPHOSPHAMIDE 1.6 GRAM
     Route: 041
     Dates: start: 20200321, end: 20200321
  2. ZANTAC [Suspect]
     Active Substance: RANITIDINE HYDROCHLORIDE
     Indication: NON-HODGKIN^S LYMPHOMA
     Dosage: 1ST, 8TH AND 14TH DAY OF VDCLP CHEMOTHERAPY, IDARUBICIN HYDROCHLORIDE + NORMAL SALINE
     Route: 041
     Dates: start: 20200321, end: 20210403
  3. 0.9% SODIUM CHLORIDE INJECTION [Suspect]
     Active Substance: SODIUM CHLORIDE
     Dosage: 1ST, 8TH AND 14TH DAY OF VDCLP CHEMOTHERAPY, NORMAL SALINE + IDARUBICIN HYDROCHLORIDE 20 MG
     Route: 041
     Dates: start: 20200321, end: 20200403
  4. VINDESINE SULFATE [Suspect]
     Active Substance: VINDESINE SULFATE
     Indication: NON-HODGKIN^S LYMPHOMA
     Dosage: 1ST, 8TH AND 14TH DAY OF VDCLP CHEMOTHERAPY, VINDESINE SULFATE + NORMAL SALINE 100 ML
     Route: 041
     Dates: start: 20200321, end: 20200403
  5. PEGASPARGASE [Suspect]
     Active Substance: PEGASPARGASE
     Indication: NON-HODGKIN^S LYMPHOMA
     Dosage: 3750 UNIT, 9TH DAY OF VDCLP CHEMOTHERAPY
     Route: 030
     Dates: start: 20200329, end: 20200329
  6. ENDOXAN [Suspect]
     Active Substance: CYCLOPHOSPHAMIDE
     Indication: NON-HODGKIN^S LYMPHOMA
     Dosage: 1ST DAY VDCLP CHEMOTHERAPY, CYCLOPHOSPHAMIDE + NORMAL SALINE 100 ML
     Route: 041
     Dates: start: 20200321, end: 20200321
  7. PREDNISONE ACETATE [Suspect]
     Active Substance: PREDNISONE ACETATE
     Indication: NON-HODGKIN^S LYMPHOMA
     Dosage: DOSAGE FORM: TABLET
     Route: 048
     Dates: start: 20200321, end: 20200410
  8. 0.9% SODIUM CHLORIDE INJECTION [Suspect]
     Active Substance: SODIUM CHLORIDE
     Dosage: 1ST, 8TH AND 14TH DAY OF VDCLP CHEMOTHERAPY, NORMAL SALINE + VINDESINE SULFATE 4 MG
     Route: 041
     Dates: start: 20200321, end: 20200403

REACTIONS (1)
  - Myelosuppression [Recovering/Resolving]

NARRATIVE: CASE EVENT DATE: 20200407
